FAERS Safety Report 9295805 (Version 1)
Quarter: 2013Q2

REPORT INFORMATION
  Report Type: Spontaneous
  Country: US (occurrence: US)
  Receive Date: 20130517
  Receipt Date: 20130517
  Transmission Date: 20140414
  Serious: Yes (Other)
  Sender: FDA-Public Use
  Company Number: US-PFIZER INC-2013149097

PATIENT
  Sex: Male

DRUGS (1)
  1. PREPARATION H MAXIMUM STRENGTH [Suspect]
     Dosage: UNK

REACTIONS (2)
  - Haemorrhoidal haemorrhage [Unknown]
  - Haemorrhoids [Unknown]
